FAERS Safety Report 8214206-7 (Version None)
Quarter: 2012Q1

REPORT INFORMATION
  Report Type: 
  Country: None (occurrence: None)
  Receive Date: 20120316
  Receipt Date: 20120312
  Transmission Date: 20120608
  Serious: Yes (Other)
  Sender: FDA-Public Use
  Company Number: BR-PFIZER INC-BR-WYE-H12480109

PATIENT
  Age: 50 Year
  Sex: Female
  Weight: 72 kg

DRUGS (9)
  1. PREMARIN [Suspect]
     Indication: HOT FLUSH
     Dosage: .625 MG, 2X/DAY
     Route: 048
     Dates: end: 20100101
  2. PREMARIN [Suspect]
     Indication: IRRITABILITY
  3. PREMARIN [Suspect]
     Indication: PAIN IN EXTREMITY
  4. LEXOTAN [Concomitant]
     Indication: INSOMNIA
     Dosage: UNK
     Dates: start: 20100101
  5. PHENOBARBITAL TAB [Concomitant]
     Indication: CONVULSION
     Dosage: UNK
     Dates: start: 20110101
  6. PREMARIN [Suspect]
     Indication: MOOD ALTERED
  7. AMITRIPTYLINE [Concomitant]
     Indication: MIGRAINE
     Dosage: UNK
  8. PREMARIN [Suspect]
     Indication: MENOPAUSE
     Dosage: 0.3MG ONE TABLET ONCE DAILY
     Route: 048
     Dates: start: 20090101
  9. PREMARIN [Suspect]
     Indication: DEPRESSION

REACTIONS (5)
  - MEMORY IMPAIRMENT [None]
  - WEIGHT INCREASED [None]
  - BREAST PAIN [None]
  - BREAST ENLARGEMENT [None]
  - DRUG INEFFECTIVE [None]
